FAERS Safety Report 20960382 (Version 3)
Quarter: 2022Q3

REPORT INFORMATION
  Report Type: Report from Study
  Country: BE (occurrence: BE)
  Receive Date: 20220615
  Receipt Date: 20220704
  Transmission Date: 20221026
  Serious: Yes (Death, Life-Threatening, Hospitalization, Other)
  Sender: FDA-Public Use
  Company Number: BE-BRISTOL-MYERS SQUIBB COMPANY-2022-057162

PATIENT
  Age: 79 Year
  Sex: Female
  Weight: 80 kg

DRUGS (32)
  1. AZACITIDINE [Suspect]
     Active Substance: AZACITIDINE
     Indication: Myelodysplastic syndrome
     Dosage: 7 DAYS WITHIN THE FIRST 9 CALENDAR DAYS OF EACH 28-DAY CYCLE
     Route: 058
     Dates: start: 20211115, end: 20220531
  2. VENETOCLAX [Suspect]
     Active Substance: VENETOCLAX
     Indication: Myelodysplastic syndrome
     Dosage: DAYS 1 - 14 OF EACH 28-DAY CYCLE
     Route: 048
     Dates: start: 20211115, end: 20220605
  3. REPAGLINIDE [Concomitant]
     Active Substance: REPAGLINIDE
     Indication: Type 2 diabetes mellitus
     Route: 048
     Dates: start: 202010
  4. METFORMIN HYDROCHLORIDE [Concomitant]
     Active Substance: METFORMIN HYDROCHLORIDE
     Indication: Type 3 diabetes mellitus
     Dosage: 3 IN 1 D
     Route: 048
     Dates: start: 20210210
  5. SIMVASTATIN [Concomitant]
     Active Substance: SIMVASTATIN
     Indication: Dyslipidaemia
     Dosage: 1 IN 1 D
     Route: 048
     Dates: start: 20091020
  6. BISOPROLOL [Concomitant]
     Active Substance: BISOPROLOL
     Indication: Hypertension
     Dosage: 1 IN 1 D
     Route: 048
     Dates: start: 20210210
  7. DORMONOCT [Concomitant]
     Active Substance: LOPRAZOLAM
     Indication: Insomnia
     Dosage: 1 IN 1 D
     Route: 048
     Dates: start: 20211112
  8. LYRICA [Concomitant]
     Active Substance: PREGABALIN
     Indication: Polyneuropathy
     Dosage: 1 IN 1 D
     Route: 048
     Dates: start: 20211112
  9. FERROUS SULFATE [Concomitant]
     Active Substance: FERROUS SULFATE
     Indication: Anaemia macrocytic
     Dosage: 1 IN 1 D
     Route: 048
     Dates: start: 20210910
  10. TRAMADOL HYDROCHLORIDE [Concomitant]
     Active Substance: TRAMADOL HYDROCHLORIDE
     Indication: Polymyalgia rheumatica
     Dosage: 3 IN 1 D
     Route: 048
     Dates: start: 20220210
  11. INSULIN GLARGINE [Concomitant]
     Active Substance: INSULIN GLARGINE
     Indication: Type 3 diabetes mellitus
     Dosage: 1 AS REQUIRED, 8 IU
     Route: 058
     Dates: start: 20220208
  12. ACETAMINOPHEN [Concomitant]
     Active Substance: ACETAMINOPHEN
     Indication: Polymyalgia rheumatica
     Dosage: 1 AS REQUIRED
     Route: 048
     Dates: start: 202010
  13. CHOLECALCIFEROL [Concomitant]
     Active Substance: CHOLECALCIFEROL
     Indication: Vitamin D deficiency
     Dosage: 1 IN 1 WK, 25000 IU,
     Route: 048
     Dates: start: 20160315
  14. HUMALOG [Concomitant]
     Active Substance: INSULIN LISPRO
     Indication: Type 3 diabetes mellitus
     Dosage: 1 AS REQUIRED, 1 IU
     Route: 058
     Dates: start: 20220208
  15. FENTANYL [Concomitant]
     Active Substance: FENTANYL
     Indication: Polymyalgia rheumatica
     Dosage: 1 IN 1 D
     Route: 023
     Dates: start: 20220219, end: 20220225
  16. FENTANYL [Concomitant]
     Active Substance: FENTANYL
     Dosage: 1 IN 1 D
     Route: 023
  17. FENTANYL [Concomitant]
     Active Substance: FENTANYL
     Dosage: 1 IN 1 D, 25 MCG/H
     Route: 023
     Dates: start: 20220225
  18. LEVOTHYROXINE [Concomitant]
     Active Substance: LEVOTHYROXINE
     Indication: Hypothyroidism
     Dosage: 1 IN 1 D
     Route: 048
     Dates: start: 20211101
  19. MOVICOL [Concomitant]
     Active Substance: POLYETHYLENE GLYCOL 3350\POTASSIUM CHLORIDE\SODIUM BICARBONATE\SODIUM CHLORIDE
     Indication: Constipation
     Dosage: 1 AS REQUIRED, 1 BAG
     Route: 048
     Dates: start: 20220208
  20. LANSOPRAZOLE [Concomitant]
     Active Substance: LANSOPRAZOLE
     Indication: Chronic gastritis
     Route: 048
     Dates: start: 20210924
  21. CALCIUM CARBONATE [Concomitant]
     Active Substance: CALCIUM CARBONATE
     Indication: Osteoporosis prophylaxis
     Route: 048
     Dates: start: 20210924
  22. ACYCLOVIR [Concomitant]
     Active Substance: ACYCLOVIR
     Indication: Infection prophylaxis
     Route: 048
     Dates: start: 20211115
  23. LITICAN [ALIZAPRIDE] [Concomitant]
     Indication: Prophylaxis of nausea and vomiting
     Dosage: 1 AS REQUIRED
     Route: 048
     Dates: start: 20211115
  24. XARELTO [Concomitant]
     Active Substance: RIVAROXABAN
     Indication: Deep vein thrombosis
     Route: 048
     Dates: start: 20220103
  25. NADROPARIN CALCIUM [Concomitant]
     Active Substance: NADROPARIN CALCIUM
     Indication: Thrombosis prophylaxis
     Route: 058
     Dates: start: 20220208
  26. PRAZEPAM [Concomitant]
     Active Substance: PRAZEPAM
     Indication: Prophylaxis
     Dosage: 15 DROP
     Route: 048
     Dates: start: 20220207
  27. METHOTREXATE [Concomitant]
     Active Substance: METHOTREXATE
     Indication: Polymyalgia rheumatica
     Dosage: 15 DROP
     Route: 048
     Dates: start: 20220215, end: 20220222
  28. METHOTREXATE [Concomitant]
     Active Substance: METHOTREXATE
     Route: 048
     Dates: start: 20220301
  29. MEDROL [Concomitant]
     Active Substance: METHYLPREDNISOLONE
     Indication: Polymyalgia rheumatica
     Dosage: 15 DROP
     Route: 048
     Dates: start: 20220213, end: 20220216
  30. MEDROL [Concomitant]
     Active Substance: METHYLPREDNISOLONE
     Route: 048
     Dates: start: 20220227, end: 20220307
  31. MEDROL [Concomitant]
     Active Substance: METHYLPREDNISOLONE
     Route: 048
     Dates: start: 20220314
  32. TAMSULOSIN [Concomitant]
     Active Substance: TAMSULOSIN
     Indication: Urinary retention
     Route: 048
     Dates: start: 20220317

REACTIONS (2)
  - Acute myeloid leukaemia [Fatal]
  - Pulmonary embolism [Not Recovered/Not Resolved]

NARRATIVE: CASE EVENT DATE: 20220603
